FAERS Safety Report 12690731 (Version 1)
Quarter: 2016Q3

REPORT INFORMATION
  Report Type: Spontaneous
  Country: FR (occurrence: FR)
  Receive Date: 20160826
  Receipt Date: 20160826
  Transmission Date: 20161109
  Serious: Yes (Other)
  Sender: FDA-Public Use
  Company Number: FR-BAXTER-2016BAX043223

PATIENT
  Age: 62 Year
  Sex: Male

DRUGS (25)
  1. UROMITEXAN 5 G/50 ML, SOLUTION INJECTABLE POUR PERFUSION EN FLACON [Suspect]
     Active Substance: MESNA
     Dosage: DILUTED IN 500ML OF SALINE SOLUTION, DECREASED VOLUME OF INFUSION
     Route: 042
     Dates: start: 20160807
  2. CHLORURE DE SODIUM 0.9% VIAFLO, SOLUTION POUR PERFUSION [Suspect]
     Active Substance: SODIUM CHLORIDE
     Dosage: ALONG WITH IFOSFAMIDE EG
     Route: 042
     Dates: start: 20160805, end: 20160805
  3. CHLORURE DE SODIUM 0.9% VIAFLO, SOLUTION POUR PERFUSION [Suspect]
     Active Substance: SODIUM CHLORIDE
     Dosage: ALONG WITH IFOSFAMIDE EG
     Route: 042
     Dates: start: 20160806, end: 20160806
  4. IFOSFAMIDE EG [Suspect]
     Active Substance: IFOSFAMIDE
     Dosage: 4TH COURSE, FOLLOWED 15 MINUTES LATER (H+15 MIN), DILUTED IN 500 ML OF SALINE SOLUTION
     Route: 042
     Dates: start: 20160806, end: 20160806
  5. BISOPROLOL [Concomitant]
     Active Substance: BISOPROLOL
     Indication: PRODUCT USED FOR UNKNOWN INDICATION
     Dosage: LONG-TERM
     Route: 065
  6. HOLOXAN 2000 MG, POUDRE POUR USAGE PARENT?RAL [Suspect]
     Active Substance: IFOSFAMIDE
     Indication: MALIGNANT NEOPLASM PROGRESSION
     Dosage: 3 COURSES, HIGH DOSE
     Route: 065
     Dates: start: 20160531, end: 20160716
  7. KYTRIL [Suspect]
     Active Substance: GRANISETRON HYDROCHLORIDE
     Route: 065
     Dates: start: 20160806
  8. CHLORURE DE SODIUM 0.9% VIAFLO, SOLUTION POUR PERFUSION [Suspect]
     Active Substance: SODIUM CHLORIDE
     Indication: MEDICATION DILUTION
     Dosage: ALONG WITH UROMITEXAN
     Route: 042
     Dates: start: 20160804, end: 20160804
  9. CHLORURE DE SODIUM 0.9% VIAFLO, SOLUTION POUR PERFUSION [Suspect]
     Active Substance: SODIUM CHLORIDE
     Dosage: ALONG WITH UROMITEXAN
     Route: 042
     Dates: start: 20160806, end: 20160806
  10. IFOSFAMIDE EG [Suspect]
     Active Substance: IFOSFAMIDE
     Dosage: 4TH COURSE, FOLLOWED 15 MINUTES LATER (H+15 MIN), DILUTED IN 500 ML OF SALINE SOLUTION
     Route: 042
     Dates: start: 20160805, end: 20160805
  11. DOXORUBICIN [Suspect]
     Active Substance: DOXORUBICIN
     Indication: OSTEOSARCOMA
     Dosage: 3 COURSES OF CHEMOTHERAPY
     Route: 065
  12. UROMITEXAN 5 G/50 ML, SOLUTION INJECTABLE POUR PERFUSION EN FLACON [Suspect]
     Active Substance: MESNA
     Dosage: AT FIRST (H0), DILUTED IN 1 L OF SALINE SOLUTION
     Route: 042
     Dates: start: 20160806, end: 20160806
  13. SOLUPRED [Suspect]
     Active Substance: PREDNISOLONE
     Indication: PREMEDICATION
     Route: 065
     Dates: start: 20160804
  14. SOLUPRED [Suspect]
     Active Substance: PREDNISOLONE
     Route: 065
     Dates: start: 20160805
  15. UROMITEXAN 5 G/50 ML, SOLUTION INJECTABLE POUR PERFUSION EN FLACON [Suspect]
     Active Substance: MESNA
     Indication: PRODUCT USED FOR UNKNOWN INDICATION
     Dosage: AT FIRST (H0), DILUTED IN 1 L OF SALINE SOLUTION
     Route: 042
     Dates: start: 20160804, end: 20160804
  16. UROMITEXAN 5 G/50 ML, SOLUTION INJECTABLE POUR PERFUSION EN FLACON [Suspect]
     Active Substance: MESNA
     Dosage: AT FIRST (H0), DILUTED IN 1 L OF SALINE SOLUTION
     Route: 042
     Dates: start: 20160805, end: 20160805
  17. CHLORURE DE SODIUM 0.9% VIAFLO, SOLUTION POUR PERFUSION [Suspect]
     Active Substance: SODIUM CHLORIDE
     Dosage: ALONG WITH IFOSFAMIDE EG
     Route: 042
     Dates: start: 20160804, end: 20160804
  18. IFOSFAMIDE EG [Suspect]
     Active Substance: IFOSFAMIDE
     Indication: MALIGNANT NEOPLASM PROGRESSION
     Dosage: 4TH COURSE, FOLLOWED 15 MINUTES LATER (H+15 MIN), DILUTED IN 500 ML OF SALINE SOLUTION
     Route: 042
     Dates: start: 20160804, end: 20160804
  19. SOLUPRED [Suspect]
     Active Substance: PREDNISOLONE
     Route: 065
     Dates: start: 20160806
  20. CHLORURE DE SODIUM 0.9% VIAFLO, SOLUTION POUR PERFUSION [Suspect]
     Active Substance: SODIUM CHLORIDE
     Dosage: ALONG WITH UROMITEXAN
     Route: 042
     Dates: start: 20160805, end: 20160805
  21. KYTRIL [Suspect]
     Active Substance: GRANISETRON HYDROCHLORIDE
     Route: 065
     Dates: start: 20160805
  22. ENALAPRIL [Concomitant]
     Active Substance: ENALAPRIL
     Indication: PRODUCT USED FOR UNKNOWN INDICATION
     Dosage: LONG-TERM
     Route: 065
  23. CHLORURE DE SODIUM 0.9% VIAFLO, SOLUTION POUR PERFUSION [Suspect]
     Active Substance: SODIUM CHLORIDE
     Dosage: ALONG WITH UROMITEXAN
     Route: 042
     Dates: start: 20160807
  24. KYTRIL [Suspect]
     Active Substance: GRANISETRON HYDROCHLORIDE
     Indication: PREMEDICATION
     Route: 065
     Dates: start: 20160804
  25. LERCANIDIPINE [Concomitant]
     Active Substance: LERCANIDIPINE
     Indication: PRODUCT USED FOR UNKNOWN INDICATION
     Dosage: LONG-TERM
     Route: 065

REACTIONS (1)
  - Acute pulmonary oedema [Recovered/Resolved]

NARRATIVE: CASE EVENT DATE: 20160806
